FAERS Safety Report 6271485-3 (Version None)
Quarter: 2009Q3

REPORT INFORMATION
  Report Type: 
  Country: None (occurrence: None)
  Receive Date: 20090717
  Receipt Date: 20090709
  Transmission Date: 20100115
  Serious: Yes (Hospitalization)
  Sender: FDA-Public Use
  Company Number: PHHY2009MX16754

PATIENT
  Age: 68 Year
  Sex: Female

DRUGS (4)
  1. ZELMAC [Suspect]
     Indication: IRRITABLE BOWEL SYNDROME
     Dosage: 6 MG, QD
     Route: 048
     Dates: start: 20071201
  2. FUROSEMIDE [Concomitant]
  3. OMEPRAZOL [Concomitant]
  4. FOLIC ACID [Concomitant]

REACTIONS (6)
  - DIZZINESS [None]
  - ENCEPHALOPATHY [None]
  - FAECES DISCOLOURED [None]
  - HEADACHE [None]
  - HEPATIC CIRRHOSIS [None]
  - PYREXIA [None]
